FAERS Safety Report 8987249 (Version 3)
Quarter: 2013Q2

REPORT INFORMATION
  Report Type: Spontaneous
  Country: US (occurrence: US)
  Receive Date: 20121226
  Receipt Date: 20130605
  Transmission Date: 20140414
  Serious: No
  Sender: FDA-Public Use
  Company Number: US-009507513-1212USA008688

PATIENT
  Age: 24 Year
  Sex: Female
  Weight: 60.32 kg

DRUGS (1)
  1. NEXPLANON [Suspect]
     Indication: CONTRACEPTION
     Dosage: 1 DF, UNK
     Route: 059
     Dates: start: 20121219

REACTIONS (3)
  - Complication of device insertion [Unknown]
  - Product quality issue [Unknown]
  - No adverse event [Unknown]
